FAERS Safety Report 18457910 (Version 1)
Quarter: 2020Q4

REPORT INFORMATION
  Report Type: Spontaneous
  Country: US (occurrence: US)
  Receive Date: 20201103
  Receipt Date: 20201103
  Transmission Date: 20210114
  Serious: No
  Sender: FDA-Public Use
  Company Number: US-BEH-2020124103

PATIENT
  Age: 92 Year
  Sex: Male

DRUGS (2)
  1. HIZENTRA [Suspect]
     Active Substance: HUMAN IMMUNOGLOBULIN G
     Indication: MYASTHENIA GRAVIS
     Dosage: 0.4 GRAM PER KILOGRAM OVER 2 DAYS
     Route: 058
     Dates: start: 2020
  2. HIZENTRA [Suspect]
     Active Substance: HUMAN IMMUNOGLOBULIN G
     Dosage: 0.5 GRAM PER KILOGRAM OVER 2 DAYS
     Route: 058
     Dates: start: 202006

REACTIONS (3)
  - No adverse event [Unknown]
  - Infusion site swelling [Unknown]
  - Product use in unapproved indication [Unknown]
